FAERS Safety Report 6086578-3 (Version None)
Quarter: 2009Q1

REPORT INFORMATION
  Report Type: 
  Country: None (occurrence: None)
  Receive Date: 20090223
  Receipt Date: 20090212
  Transmission Date: 20090719
  Serious: Yes (Hospitalization)
  Sender: FDA-Public Use
  Company Number: US-AMGEN-QUU333568

PATIENT
  Age: 53 Year
  Sex: Female

DRUGS (22)
  1. ENBREL [Suspect]
     Indication: DRUG USE FOR UNKNOWN INDICATION
  2. ASCORBIC ACID [Concomitant]
  3. ASPIRIN [Concomitant]
  4. CALCIUM CARBONATE [Concomitant]
  5. SULFASALAZINE [Concomitant]
  6. DOCUSATE [Concomitant]
  7. LOVENOX [Concomitant]
  8. FERROUS SULFATE TAB [Concomitant]
  9. PROZAC [Concomitant]
  10. INSULIN [Concomitant]
  11. METHADONE HCL [Concomitant]
  12. REGLAN [Concomitant]
  13. REMERON [Concomitant]
  14. MULTI-VITAMINS [Concomitant]
  15. PRILOSEC [Concomitant]
  16. FOSAMAX [Concomitant]
  17. VITAMIN A [Concomitant]
  18. TYLENOL [Concomitant]
  19. AMITRIPTYLINE [Concomitant]
  20. ZOFRAN [Concomitant]
  21. SENOKOT [Concomitant]
  22. ULTRAM [Concomitant]

REACTIONS (1)
  - SPINAL FUSION SURGERY [None]
